FAERS Safety Report 10006016 (Version 1)
Quarter: 2014Q1

REPORT INFORMATION
  Report Type: Spontaneous
  Country: US (occurrence: US)
  Receive Date: 20140313
  Receipt Date: 20140313
  Transmission Date: 20141002
  Serious: No
  Sender: FDA-Public Use
  Company Number: US-009507513-1403USA000068

PATIENT
  Age: 40 Year
  Sex: Female

DRUGS (7)
  1. CORICIDIN HBP COLD AND FLU [Suspect]
     Indication: INFLUENZA
  2. CORICIDIN HBP COLD AND FLU [Suspect]
     Indication: PYREXIA
  3. CORICIDIN HBP COLD AND FLU [Suspect]
     Indication: CHILLS
  4. CORICIDIN HBP COLD AND FLU [Suspect]
     Indication: PAIN
  5. CORICIDIN HBP COLD AND FLU [Suspect]
     Indication: NASAL CONGESTION
  6. CORICIDIN HBP COLD AND FLU [Suspect]
     Indication: DYSPNOEA
  7. CORICIDIN HBP COLD AND FLU [Suspect]
     Indication: SNORING

REACTIONS (1)
  - Drug effect decreased [Unknown]
